FAERS Safety Report 23527701 (Version 1)
Quarter: 2024Q1

REPORT INFORMATION
  Report Type: Spontaneous
  Country: US (occurrence: None)
  Receive Date: 20240215
  Receipt Date: 20240215
  Transmission Date: 20240410
  Serious: Yes (unspecified)
  Sender: FDA-Public Use
  Company Number: None

PATIENT
  Age: 69 Year
  Sex: Male
  Weight: 72.6 kg

DRUGS (15)
  1. REPATHA [Suspect]
     Active Substance: EVOLOCUMAB
     Indication: Coronary artery disease
     Dosage: OTHER FREQUENCY : EVERY 14 DAYS;?
     Route: 058
     Dates: start: 20240128, end: 20240208
  2. REPATHA [Suspect]
     Active Substance: EVOLOCUMAB
     Indication: Hyperlipidaemia
  3. aspirin 81 mG tablet once daily [Concomitant]
  4. clopidogrel 75 mG once daily [Concomitant]
  5. trazodone 50 mG once daily [Concomitant]
  6. Vitamin D3 1000 units once daily [Concomitant]
  7. nitroglycerin 0.4 mG SL tab as needed [Concomitant]
  8. atorvastatin 80 mG once daily [Concomitant]
  9. sertraline 50 mG 2 tablets once daily [Concomitant]
  10. pantoprazole 40 mG once daily [Concomitant]
  11. carvedilol 25 mG twice daily [Concomitant]
  12. hydrochlorothiazide 25 mG once daily [Concomitant]
  13. ramipril 2.5 mG once daily [Concomitant]
  14. cetirizine 10 mG once daily [Concomitant]
  15. multivitamin 1 tablet once daily [Concomitant]

REACTIONS (3)
  - Diarrhoea [None]
  - Gastroenteritis [None]
  - Therapy interrupted [None]

NARRATIVE: CASE EVENT DATE: 20240129
